FAERS Safety Report 9183503 (Version 1)
Quarter: 2012Q4

REPORT INFORMATION
  Report Type: 
  Country: US (occurrence: US)
  Receive Date: 20121101
  Receipt Date: 20121101
  Transmission Date: 20130627
  Serious: No
  Sender: FDA-Public Use
  Company Number: US-PFIZER INC-2012269744

PATIENT
  Age: 79 Year
  Sex: Female

DRUGS (5)
  1. NORVASC [Suspect]
     Dosage: 10 mg, daily
  2. DIOVAN (VALSARTAN) [Suspect]
     Dosage: UNK
  3. LIPITOR [Concomitant]
     Dosage: UNK
  4. PROTONIX [Concomitant]
     Dosage: UNK
  5. NITROGLYCERIN [Concomitant]
     Dosage: UNK

REACTIONS (6)
  - Palpitations [Unknown]
  - Dyspnoea [Unknown]
  - Malaise [Unknown]
  - Heart rate irregular [Unknown]
  - Blood pressure inadequately controlled [Unknown]
  - Nausea [Unknown]
